FAERS Safety Report 5221688-1 (Version None)
Quarter: 2007Q1

REPORT INFORMATION
  Report Type: 
  Country: None (occurrence: None)
  Receive Date: 20070129
  Receipt Date: 20070117
  Transmission Date: 20070707
  Serious: Yes (Other)
  Sender: FDA-Public Use
  Company Number: PHBS2007DK01340

PATIENT
  Age: 61 Year
  Sex: Male

DRUGS (4)
  1. LEPONEX [Suspect]
     Indication: SCHIZOPHRENIA
     Dosage: 200 MG, BID
     Route: 048
     Dates: start: 20060901
  2. CISORDINOL [Concomitant]
  3. RIVOTRIL [Concomitant]
  4. EGAZIL DURETTER [Concomitant]

REACTIONS (1)
  - VENTRICULAR EXTRASYSTOLES [None]
